FAERS Safety Report 10016641 (Version 2)
Quarter: 2014Q1

REPORT INFORMATION
  Report Type: Report from Study
  Country: US (occurrence: US)
  Receive Date: 20140317
  Receipt Date: 20140326
  Transmission Date: 20141002
  Serious: Yes (Death, Hospitalization)
  Sender: FDA-Public Use
  Company Number: US-ACTELION-A-US2014-95820

PATIENT
  Age: 67 Year
  Sex: Female

DRUGS (3)
  1. MACITENTAN [Suspect]
     Indication: PULMONARY ARTERIAL HYPERTENSION
     Dosage: 10 MG, QD
     Route: 048
     Dates: start: 20131211, end: 20140321
  2. VELETRI [Concomitant]
     Indication: PULMONARY ARTERIAL HYPERTENSION
     Dosage: UNK
     Route: 042
     Dates: start: 201402, end: 20140321
  3. RIOCIGUAT [Concomitant]
     Dosage: UNK
     Dates: start: 201402, end: 20140321

REACTIONS (9)
  - Pulmonary arterial hypertension [Fatal]
  - Dyspnoea [Fatal]
  - Hypoxia [Fatal]
  - Oedema [Fatal]
  - Disease progression [Fatal]
  - Pneumonia [Unknown]
  - Cough [Unknown]
  - Hypotension [Unknown]
  - Urinary tract infection [Unknown]
